FAERS Safety Report 10061568 (Version 1)
Quarter: 2014Q2

REPORT INFORMATION
  Report Type: Spontaneous
  Country: US (occurrence: None)
  Receive Date: 20140403
  Receipt Date: 20140403
  Transmission Date: 20141212
  Serious: Yes (Other)
  Sender: FDA-Public Use
  Company Number: AUR-APL-2014-03966

PATIENT
  Age: 65 Year
  Sex: Female

DRUGS (15)
  1. HYDROCHLOROTHIAZIDE (HYDROCHLOROTHIAZIDE) [Suspect]
     Indication: HYPERTENSION
     Route: 048
     Dates: start: 20140216, end: 20140227
  2. LISINOPRIL (LISINOPRIL) [Suspect]
     Indication: HYPERTENSION
  3. METOPROLOL (METOPROLOL) [Suspect]
     Indication: HYPERTENSION
  4. NORVASC (AMLODIPINE BESILATE) [Suspect]
     Indication: HYPERTENSION
  5. LEVOMILNACIPRAN (LEVOMILNACIPRAN) [Suspect]
     Indication: PRODUCT USED FOR UNKNOWN INDICATION
     Route: 048
     Dates: start: 20140214, end: 20140215
  6. ADVAIR DISKUS [Concomitant]
  7. SERETIDE (SERETIDE) [Concomitant]
  8. ESTRATEST (ESTRATEST HS) [Concomitant]
  9. ALBUTEROL (SALBUTAMOL) [Concomitant]
  10. PULMICORT (BUDESONIDE) [Concomitant]
  11. GLIPIZIDE (GLIPIZIDE) [Concomitant]
  12. METFORMIN (METFORMIN) [Concomitant]
  13. NEURONTIN (GABAPENTIN) [Concomitant]
  14. SINGULAIR (MONTELUKAST SODIUM) [Concomitant]
  15. PROTONIX (PANTOPRAZOLE SODIUM SESQUIHYDRATE) [Concomitant]

REACTIONS (1)
  - Hypertension [None]
